FAERS Safety Report 10067729 (Version 2)
Quarter: 2014Q2

REPORT INFORMATION
  Report Type: Spontaneous
  Country: IT (occurrence: IT)
  Receive Date: 20140409
  Receipt Date: 20140416
  Transmission Date: 20141212
  Serious: Yes (Other)
  Sender: FDA-Public Use
  Company Number: IT-ASTRAZENECA-2014SE23099

PATIENT
  Age: 66 Year
  Sex: Female

DRUGS (13)
  1. TRIATEC [Suspect]
     Indication: HYPERTENSION
     Route: 048
  2. SEROQUEL [Interacting]
     Route: 048
  3. SEROQUEL [Interacting]
     Route: 048
  4. CARDIOASPIRIN [Interacting]
     Route: 048
  5. CYMBALTA [Interacting]
     Route: 048
     Dates: start: 2013
  6. CYMBALTA [Interacting]
     Route: 048
     Dates: start: 2013
  7. CYMBALTA [Interacting]
     Route: 048
     Dates: start: 201309, end: 20130927
  8. CYMBALTA [Interacting]
     Route: 048
     Dates: start: 20130927, end: 20130929
  9. EBIXA [Interacting]
     Route: 048
  10. TOPAMAX [Interacting]
     Route: 065
  11. TOPAMAX [Interacting]
     Route: 065
  12. EXELON [Interacting]
     Route: 065
  13. EXELON [Interacting]
     Route: 065

REACTIONS (17)
  - Drug interaction [Unknown]
  - Agnosia [Not Recovered/Not Resolved]
  - Loss of consciousness [Unknown]
  - Confusional state [Unknown]
  - Dysstasia [Unknown]
  - Condition aggravated [Unknown]
  - Dementia Alzheimer^s type [Unknown]
  - Anxiety [Unknown]
  - Anxiety [Not Recovered/Not Resolved]
  - Agitation [Unknown]
  - Clonus [Unknown]
  - Acute psychosis [Unknown]
  - Psychomotor hyperactivity [Unknown]
  - Partial seizures [Unknown]
  - Convulsion [Unknown]
  - Tonic convulsion [Unknown]
  - Psychomotor hyperactivity [Not Recovered/Not Resolved]
